FAERS Safety Report 18333190 (Version 4)
Quarter: 2020Q4

REPORT INFORMATION
  Report Type: Report from Study
  Country: CA (occurrence: CA)
  Receive Date: 20201001
  Receipt Date: 20201009
  Transmission Date: 20210113
  Serious: Yes (Other)
  Sender: FDA-Public Use
  Company Number: CA-GLAXOSMITHKLINE-CA2018240611

PATIENT
  Age: 48 Year
  Sex: Male

DRUGS (5)
  1. OTEZLA [Concomitant]
     Active Substance: APREMILAST
     Indication: PRODUCT USED FOR UNKNOWN INDICATION
     Dosage: UNK
     Route: 065
  2. DICLOFENAC [Suspect]
     Active Substance: DICLOFENAC
     Indication: ANKYLOSING SPONDYLITIS
     Dosage: 50 MG, BID
     Route: 048
     Dates: start: 2017
  3. SIMPONI [Concomitant]
     Active Substance: GOLIMUMAB
     Indication: PRODUCT USED FOR UNKNOWN INDICATION
     Dosage: 1 DF (QMO)
     Route: 065
     Dates: start: 201805, end: 20180814
  4. TYLENOL ARTHRITIS PAIN [Concomitant]
     Active Substance: ACETAMINOPHEN
     Indication: PRODUCT USED FOR UNKNOWN INDICATION
     Dosage: UNK UNK, PRN
     Route: 065
  5. HUMIRA [Concomitant]
     Active Substance: ADALIMUMAB
     Indication: PRODUCT USED FOR UNKNOWN INDICATION
     Dosage: 1 DF (40MG), Q2MO
     Route: 065
     Dates: start: 2017, end: 2017

REACTIONS (24)
  - Necrosis [Unknown]
  - Discomfort [Unknown]
  - Joint swelling [Unknown]
  - Drug intolerance [Unknown]
  - Vascular pain [Unknown]
  - Peripheral swelling [Unknown]
  - Back pain [Unknown]
  - Arthralgia [Unknown]
  - Mouth swelling [Unknown]
  - Swollen tongue [Not Recovered/Not Resolved]
  - Pain in extremity [Unknown]
  - Mobility decreased [Unknown]
  - Gait disturbance [Unknown]
  - Musculoskeletal stiffness [Unknown]
  - Pain [Unknown]
  - Fatigue [Unknown]
  - Ankylosing spondylitis [Unknown]
  - Erythema [Unknown]
  - Skin discolouration [Unknown]
  - Hypersensitivity [Not Recovered/Not Resolved]
  - Arterial occlusive disease [Unknown]
  - Abdominal pain upper [Unknown]
  - Pulse absent [Unknown]
  - Post procedural swelling [Unknown]

NARRATIVE: CASE EVENT DATE: 20181010
